FAERS Safety Report 17246233 (Version 2)
Quarter: 2020Q1

REPORT INFORMATION
  Report Type: Report from Study
  Country: None (occurrence: BR)
  Receive Date: 20200108
  Receipt Date: 20200108
  Transmission Date: 20200409
  Serious: Yes (Other)
  Sender: FDA-Public Use
  Company Number: BR-ABBVIE-20K-020-3217691-00

PATIENT
  Age: 31 Year
  Sex: Male
  Weight: 48 kg

DRUGS (1)
  1. HUMIRA [Suspect]
     Active Substance: ADALIMUMAB
     Indication: CROHN^S DISEASE
     Route: 058
     Dates: start: 20150810

REACTIONS (3)
  - Drug-induced liver injury [Unknown]
  - Exposure to communicable disease [Unknown]
  - Hepatitis B [Recovered/Resolved]

NARRATIVE: CASE EVENT DATE: 20190701
